FAERS Safety Report 5661483-2 (Version None)
Quarter: 2008Q1

REPORT INFORMATION
  Report Type: 
  Country: None (occurrence: None)
  Receive Date: 20080312
  Receipt Date: 20080304
  Transmission Date: 20080703
  Serious: Yes (Other)
  Sender: FDA-Public Use
  Company Number: PHEH2008US02527

PATIENT

DRUGS (1)
  1. EXELON [Suspect]
     Route: 062

REACTIONS (1)
  - URINARY RETENTION [None]
